FAERS Safety Report 13615522 (Version 2)
Quarter: 2017Q3

REPORT INFORMATION
  Report Type: Report from Study
  Country: IR (occurrence: IR)
  Receive Date: 20170606
  Receipt Date: 20170717
  Transmission Date: 20171127
  Serious: Yes (Hospitalization)
  Sender: FDA-Public Use
  Company Number: IR-SA-2017SA099769

PATIENT
  Sex: Male

DRUGS (2)
  1. SOLOSTAR [Concomitant]
     Active Substance: DEVICE
     Dates: start: 20161026, end: 2017
  2. LANTUS SOLOSTAR [Suspect]
     Active Substance: INSULIN GLARGINE
     Indication: FOETAL EXPOSURE TIMING UNSPECIFIED
     Dosage: DOSE:36 UNIT(S)
     Route: 064
     Dates: start: 20161026, end: 2017

REACTIONS (2)
  - Foetal exposure during pregnancy [Unknown]
  - Respiratory disorder [Unknown]
